FAERS Safety Report 15125214 (Version 1)
Quarter: 2018Q3

REPORT INFORMATION
  Report Type: Spontaneous
  Country: US (occurrence: US)
  Receive Date: 20180710
  Receipt Date: 20180710
  Transmission Date: 20181010
  Serious: Yes (Other)
  Sender: FDA-Public Use
  Company Number: US-ORPHAN EUROPE-2051642

PATIENT
  Age: 56 Year
  Sex: Male
  Weight: 86.82 kg

DRUGS (5)
  1. VITAMIN B12 [Concomitant]
     Active Substance: CYANOCOBALAMIN
     Dates: start: 20170531
  2. EZETIMIBE. [Concomitant]
     Active Substance: EZETIMIBE
  3. BUPROPION. [Concomitant]
     Active Substance: BUPROPION
     Dates: start: 20170818
  4. CARBAGLU [Suspect]
     Active Substance: CARGLUMIC ACID
     Indication: UREA CYCLE DISORDER
     Dates: start: 20171103
  5. CLONAZEPAM. [Concomitant]
     Active Substance: CLONAZEPAM
     Dates: start: 20170531

REACTIONS (2)
  - Off label use [Unknown]
  - Myocardial infarction [Unknown]
